FAERS Safety Report 15488193 (Version 2)
Quarter: 2019Q1

REPORT INFORMATION
  Report Type: Spontaneous
  Country: JP (occurrence: JP)
  Receive Date: 20181011
  Receipt Date: 20190313
  Transmission Date: 20190417
  Serious: Yes (Death, Other)
  Sender: FDA-Public Use
  Company Number: JP-BAYER-2018-112262

PATIENT
  Age: 74 Year
  Sex: Male
  Weight: 74 kg

DRUGS (6)
  1. STIVARGA [Suspect]
     Active Substance: REGORAFENIB
     Dosage: 120 MG
  2. NEXAVAR [Suspect]
     Active Substance: SORAFENIB
     Indication: HEPATOCELLULAR CARCINOMA
     Dosage: DAILY DOSE 800 MG
     Route: 048
  3. NEXAVAR [Suspect]
     Active Substance: SORAFENIB
     Indication: HEPATOCELLULAR CARCINOMA
     Dosage: DAILY DOSE 600 MG
     Route: 048
     Dates: start: 20160706
  4. STIVARGA [Suspect]
     Active Substance: REGORAFENIB
     Dosage: 80 MG
     Dates: start: 20170726
  5. STIVARGA [Suspect]
     Active Substance: REGORAFENIB
     Dosage: 160 MG
     Dates: end: 201803
  6. NEXAVAR [Suspect]
     Active Substance: SORAFENIB
     Indication: HEPATOCELLULAR CARCINOMA
     Dosage: DAILY DOSE 600 MG
     Route: 048
     Dates: end: 20170719

REACTIONS (4)
  - Palmar-plantar erythrodysaesthesia syndrome [Recovered/Resolved]
  - Pneumonia aspiration [Fatal]
  - Metastases to bone [None]
  - Hepatocellular carcinoma [None]

NARRATIVE: CASE EVENT DATE: 2016
